FAERS Safety Report 22875768 (Version 5)
Quarter: 2024Q1

REPORT INFORMATION
  Report Type: Spontaneous
  Country: US (occurrence: US)
  Receive Date: 20230829
  Receipt Date: 20240226
  Transmission Date: 20240410
  Serious: No
  Sender: FDA-Public Use
  Company Number: US-SA-SAC20230824000157

PATIENT
  Age: 37 Year
  Sex: Female

DRUGS (2)
  1. DUPIXENT [Suspect]
     Active Substance: DUPILUMAB
     Indication: Dermatitis
     Dosage: 600 MG 1X
     Route: 058
     Dates: start: 202307, end: 202307
  2. DUPIXENT [Suspect]
     Active Substance: DUPILUMAB
     Indication: Eczema
     Dosage: 300 MG, QOW
     Route: 058
     Dates: start: 2023

REACTIONS (11)
  - Peripheral swelling [Recovered/Resolved]
  - Pruritus [Unknown]
  - Insomnia [Unknown]
  - Condition aggravated [Unknown]
  - Eczema [Not Recovered/Not Resolved]
  - Skin erosion [Not Recovered/Not Resolved]
  - Skin exfoliation [Not Recovered/Not Resolved]
  - Dry skin [Not Recovered/Not Resolved]
  - Pain [Not Recovered/Not Resolved]
  - Product dose omission in error [Unknown]
  - Skin fissures [Not Recovered/Not Resolved]

NARRATIVE: CASE EVENT DATE: 20230101
